FAERS Safety Report 23862030 (Version 2)
Quarter: 2024Q2

REPORT INFORMATION
  Report Type: Spontaneous
  Country: US (occurrence: None)
  Receive Date: 20240516
  Receipt Date: 20240615
  Transmission Date: 20240716
  Serious: No
  Sender: FDA-Public Use
  Company Number: 2024A101978

PATIENT
  Age: 22178 Day
  Sex: Female

DRUGS (1)
  1. TEZSPIRE [Suspect]
     Active Substance: TEZEPELUMAB-EKKO
     Dates: start: 20230601

REACTIONS (3)
  - Fatigue [Unknown]
  - Sinusitis [Unknown]
  - Dizziness [Unknown]

NARRATIVE: CASE EVENT DATE: 20240429
